FAERS Safety Report 18791151 (Version 2)
Quarter: 2021Q2

REPORT INFORMATION
  Report Type: Report from Study
  Country: ES (occurrence: ES)
  Receive Date: 20210126
  Receipt Date: 20210518
  Transmission Date: 20210717
  Serious: No
  Sender: FDA-Public Use
  Company Number: ES-UCBSA-2020052895

PATIENT
  Age: 54 Year
  Sex: Female

DRUGS (1)
  1. ROTIGOTINE PD [Suspect]
     Active Substance: ROTIGOTINE
     Indication: PARKINSON^S DISEASE
     Dosage: 24 MILLIGRAM

REACTIONS (3)
  - Insomnia [Unknown]
  - Product adhesion issue [Unknown]
  - Overdose [Unknown]
